FAERS Safety Report 9618942 (Version 1)
Quarter: 2013Q4

REPORT INFORMATION
  Report Type: Spontaneous
  Country: KR (occurrence: US)
  Receive Date: 20131014
  Receipt Date: 20131014
  Transmission Date: 20140711
  Serious: Yes (Death)
  Sender: FDA-Public Use
  Company Number: KR-DRAFT-US-2013-11803

PATIENT
  Age: 61 Year
  Sex: Male

DRUGS (2)
  1. BUSULFEX [Suspect]
     Indication: BONE MARROW CONDITIONING REGIMEN
     Dosage: UNK
  2. METHOTREXATE [Concomitant]
     Indication: CHEMOTHERAPY
     Dosage: UNK

REACTIONS (1)
  - Lymphoma [Fatal]
